FAERS Safety Report 13497052 (Version 4)
Quarter: 2017Q2

REPORT INFORMATION
  Report Type: Spontaneous
  Country: US (occurrence: US)
  Receive Date: 20170428
  Receipt Date: 20170629
  Transmission Date: 20170830
  Serious: Yes (Death, Other)
  Sender: FDA-Public Use
  Company Number: US-MUNDIPHARMA DS AND PHARMACOVIGILANCE-USA-2017-0138388

PATIENT
  Age: 2 Year
  Sex: Male
  Weight: 16.78 kg

DRUGS (1)
  1. OXYCODONE HYDROCHLORIDE (SIMILAR TO NDA 22-272) [Suspect]
     Active Substance: OXYCODONE HYDROCHLORIDE
     Indication: ACCIDENTAL EXPOSURE TO PRODUCT BY CHILD
     Dosage: UNK
     Route: 048

REACTIONS (6)
  - Pulmonary congestion [Not Recovered/Not Resolved]
  - Accidental exposure to product by child [Unknown]
  - Foaming at mouth [Unknown]
  - Toxicity to various agents [Fatal]
  - Respiratory arrest [Unknown]
  - Pulmonary oedema [Not Recovered/Not Resolved]

NARRATIVE: CASE EVENT DATE: 20170126
